FAERS Safety Report 17969400 (Version 1)
Quarter: 2020Q3

REPORT INFORMATION
  Report Type: Spontaneous
  Country: ES (occurrence: ES)
  Receive Date: 20200701
  Receipt Date: 20200701
  Transmission Date: 20201103
  Serious: Yes (Hospitalization)
  Sender: FDA-Public Use
  Company Number: ES-MYLANLABS-2020M1059258

PATIENT
  Age: 53 Year
  Sex: Female

DRUGS (2)
  1. ROACTEMRA [Suspect]
     Active Substance: TOCILIZUMAB
     Indication: POLYARTHRITIS
     Dosage: 162 MILLIGRAM, QW(DOSIS UNIDAD FRECUENCIA 162 MG)
     Route: 042
     Dates: start: 20150710, end: 20151020
  2. METHOTREXATE. [Suspect]
     Active Substance: METHOTREXATE
     Indication: PRODUCT USED FOR UNKNOWN INDICATION
     Dosage: 15 MILLIGRAM, QW(DOSIS UNIDAD FRECUENCIA)
     Route: 048
     Dates: start: 2013, end: 20151020

REACTIONS (2)
  - Cerebellar infarction [Recovering/Resolving]
  - Reversible cerebral vasoconstriction syndrome [Recovering/Resolving]

NARRATIVE: CASE EVENT DATE: 20151020
